FAERS Safety Report 4551190-1 (Version None)
Quarter: 2005Q1

REPORT INFORMATION
  Report Type: 
  Country: None (occurrence: None)
  Receive Date: 20050106
  Receipt Date: 20041221
  Transmission Date: 20050727
  Serious: Yes (Death)
  Sender: FDA-Public Use
  Company Number: T04-SWE-07682-01

PATIENT
  Age: 83 Year
  Sex: Female
  Weight: 70 kg

DRUGS (7)
  1. MEMANTINE HCL [Suspect]
     Indication: DEMENTIA ALZHEIMER'S TYPE
     Dosage: 20 MG QD PO
     Route: 048
     Dates: start: 20030724, end: 20041114
  2. BEHEPAN           (CYANOCOBALAMIN) [Concomitant]
  3. FOLACIN [Concomitant]
  4. KATAIPOS D [Concomitant]
  5. OXASCAN                   (OXAZEPAM) [Concomitant]
  6. HEMINEURIN (CLOMETHIAZOLE) [Concomitant]
  7. ZOPLIKON [Concomitant]

REACTIONS (26)
  - AGGRESSION [None]
  - ANOREXIA [None]
  - ANXIETY [None]
  - ATHEROSCLEROSIS [None]
  - BLADDER PAIN [None]
  - BLOOD PRESSURE IMMEASURABLE [None]
  - CARDIAC FAILURE [None]
  - CEREBRAL ATROPHY [None]
  - COLD SWEAT [None]
  - DEATH OF SPOUSE [None]
  - DIZZINESS [None]
  - FALL [None]
  - FLUID INTAKE REDUCED [None]
  - GASTRIC DISORDER [None]
  - HALLUCINATION [None]
  - JEJUNAL GANGRENE [None]
  - LEIOMYOMA [None]
  - NEPHROSCLEROSIS [None]
  - PAIN [None]
  - PALLOR [None]
  - PULMONARY CONGESTION [None]
  - PULMONARY HAEMORRHAGE [None]
  - PULMONARY OEDEMA [None]
  - RESTLESSNESS [None]
  - STICKY SKIN [None]
  - THERAPEUTIC RESPONSE DECREASED [None]
